FAERS Safety Report 12234697 (Version 1)
Quarter: 2016Q2

REPORT INFORMATION
  Report Type: Spontaneous
  Country: FR (occurrence: FR)
  Receive Date: 20160404
  Receipt Date: 20160404
  Transmission Date: 20160815
  Serious: Yes (Life-Threatening)
  Sender: FDA-Public Use
  Company Number: FR-SA-2016SA064839

PATIENT
  Sex: Male

DRUGS (5)
  1. EUPANTOL [Suspect]
     Active Substance: PANTOPRAZOLE SODIUM
     Route: 064
  2. IKOREL [Suspect]
     Active Substance: NICORANDIL
     Route: 064
  3. BISOCE [Suspect]
     Active Substance: BISOPROLOL
     Route: 064
  4. KARDEGIC [Suspect]
     Active Substance: ASPIRIN LYSINE
     Route: 064
  5. PLAVIX [Suspect]
     Active Substance: CLOPIDOGREL BISULFATE
     Route: 064
     Dates: end: 20150131

REACTIONS (1)
  - Apparent death [Recovered/Resolved]

NARRATIVE: CASE EVENT DATE: 20150205
